FAERS Safety Report 11637132 (Version 1)
Quarter: 2015Q4

REPORT INFORMATION
  Report Type: Spontaneous
  Country: GB (occurrence: GB)
  Receive Date: 20151016
  Receipt Date: 20151016
  Transmission Date: 20160304
  Serious: Yes (Hospitalization)
  Sender: FDA-Public Use
  Company Number: GB-JNJFOC-20151011322

PATIENT
  Age: 92 Year
  Sex: Female

DRUGS (2)
  1. XARELTO [Suspect]
     Active Substance: RIVAROXABAN
     Indication: PRODUCT USED FOR UNKNOWN INDICATION
     Route: 048
  2. WARFARIN [Concomitant]
     Active Substance: WARFARIN
     Route: 065

REACTIONS (1)
  - Hallucination [Recovered/Resolved]

NARRATIVE: CASE EVENT DATE: 20150923
